FAERS Safety Report 19392943 (Version 1)
Quarter: 2021Q2

REPORT INFORMATION
  Report Type: Spontaneous
  Country: DE (occurrence: DE)
  Receive Date: 20210609
  Receipt Date: 20210609
  Transmission Date: 20210717
  Serious: Yes (Other)
  Sender: FDA-Public Use
  Company Number: DE-AUROBINDO-AUR-APL-2021-023579

PATIENT
  Sex: Male

DRUGS (3)
  1. ASPIRIN BP [Concomitant]
     Indication: CARDIOVASCULAR DISORDER
     Dosage: UNK
     Route: 065
  2. MELPHALAN. [Suspect]
     Active Substance: MELPHALAN
     Indication: LYMPHOMA
     Dosage: UNK
     Route: 042
  3. METOPROLOL. [Concomitant]
     Active Substance: METOPROLOL
     Indication: CARDIOVASCULAR DISORDER
     Dosage: UNK
     Route: 065

REACTIONS (1)
  - Enterocolitis haemorrhagic [Not Recovered/Not Resolved]
